FAERS Safety Report 7860875-0 (Version None)
Quarter: 2011Q4

REPORT INFORMATION
  Report Type: 
  Country: None (occurrence: None)
  Receive Date: 20111027
  Receipt Date: 20111021
  Transmission Date: 20120403
  Serious: Yes (Life-Threatening, Other)
  Sender: FDA-Public Use
  Company Number: JP-B.I. PHARMACEUTICALS,INC./RIDGEFIELD-2011-BP-24730NB

PATIENT
  Age: 94 Year
  Sex: Female

DRUGS (3)
  1. MOBIC [Suspect]
     Route: 065
  2. PREDNISOLONE [Suspect]
     Route: 065
  3. PRADAXA [Suspect]
     Indication: ATRIAL FIBRILLATION
     Route: 048
     Dates: end: 20111018

REACTIONS (3)
  - LOWER GASTROINTESTINAL HAEMORRHAGE [None]
  - ACTIVATED PARTIAL THROMBOPLASTIN TIME PROLONGED [None]
  - ALTERED STATE OF CONSCIOUSNESS [None]
